FAERS Safety Report 6405714-X (Version None)
Quarter: 2009Q4

REPORT INFORMATION
  Report Type: 
  Country: None (occurrence: None)
  Receive Date: 20091016
  Receipt Date: 20091016
  Transmission Date: 20100525
  Serious: Yes (Life-Threatening, Disabling, Other)
  Sender: FDA-Public Use
  Company Number: None

PATIENT
  Sex: Female
  Weight: 83.4619 kg

DRUGS (2)
  1. SUBOXONE [Suspect]
     Indication: PAIN
     Dosage: TAKE 1/2 TABLET TWICE DAILY BY MOUTH
     Route: 048
     Dates: start: 20070301, end: 20070701
  2. SUBOXONE [Suspect]
     Indication: PAIN
     Dosage: TAKE 1/2 TABLET TWICE DAILY BY MOUTH
     Route: 048
     Dates: start: 20080901, end: 20090129

REACTIONS (16)
  - BLISTER [None]
  - BURNS FIRST DEGREE [None]
  - BURNS SECOND DEGREE [None]
  - DRUG HYPERSENSITIVITY [None]
  - ERYTHEMA [None]
  - FALL [None]
  - HEAD INJURY [None]
  - HEADACHE [None]
  - IMPAIRED DRIVING ABILITY [None]
  - IMPAIRED HEALING [None]
  - IMPAIRED WORK ABILITY [None]
  - MEMORY IMPAIRMENT [None]
  - SCAR [None]
  - SOMNAMBULISM [None]
  - SOMNOLENCE [None]
  - SYNCOPE [None]
